FAERS Safety Report 15164348 (Version 3)
Quarter: 2018Q3

REPORT INFORMATION
  Report Type: Report from Study
  Country: BR (occurrence: BR)
  Receive Date: 20180719
  Receipt Date: 20180824
  Transmission Date: 20181010
  Serious: Yes (Hospitalization, Other)
  Sender: FDA-Public Use
  Company Number: BR-EMD SERONO-E2B_90051102

PATIENT
  Age: 23 Year
  Sex: Male

DRUGS (2)
  1. REBIF [Suspect]
     Active Substance: INTERFERON BETA-1A
     Indication: MULTIPLE SCLEROSIS
     Route: 058
     Dates: start: 20160816, end: 20180706
  2. LEVOTHYROXINE SODIUM. [Concomitant]
     Active Substance: LEVOTHYROXINE SODIUM
     Indication: THYROID DISORDER
     Dates: end: 20180706

REACTIONS (25)
  - Scleral discolouration [Unknown]
  - Burning sensation [Recovered/Resolved]
  - Joint lock [Unknown]
  - C-reactive protein increased [Unknown]
  - pH urine decreased [Unknown]
  - Pyrexia [Recovered/Resolved]
  - Syncope [Unknown]
  - Joint swelling [Unknown]
  - Immobile [Unknown]
  - White blood cell count increased [Unknown]
  - Eosinophil count decreased [Unknown]
  - Blood lactate dehydrogenase increased [Unknown]
  - Pain [Unknown]
  - Headache [Unknown]
  - Blood phosphorus increased [Unknown]
  - Dermatitis allergic [Recovered/Resolved]
  - Tremor [Unknown]
  - Gait disturbance [Unknown]
  - Red cell distribution width decreased [Unknown]
  - Aspartate aminotransferase increased [Unknown]
  - Arthralgia [Unknown]
  - Seizure [Unknown]
  - Gamma-glutamyltransferase increased [Not Recovered/Not Resolved]
  - Blood alkaline phosphatase increased [Unknown]
  - Alanine aminotransferase increased [Unknown]

NARRATIVE: CASE EVENT DATE: 2018
